FAERS Safety Report 23697914 (Version 1)
Quarter: 2024Q2

REPORT INFORMATION
  Report Type: Spontaneous
  Country: JP (occurrence: JP)
  Receive Date: 20240402
  Receipt Date: 20240402
  Transmission Date: 20240716
  Serious: Yes (Hospitalization)
  Sender: FDA-Public Use
  Company Number: JP-ABBVIE-5685426

PATIENT
  Age: 40 Year
  Sex: Female
  Weight: 73 kg

DRUGS (46)
  1. ASENAPINE MALEATE [Suspect]
     Active Substance: ASENAPINE MALEATE
     Indication: Schizophrenia
     Route: 048
     Dates: start: 20190527, end: 20190602
  2. ASENAPINE MALEATE [Suspect]
     Active Substance: ASENAPINE MALEATE
     Indication: Schizophrenia
     Route: 060
     Dates: start: 20180926, end: 20181004
  3. ASENAPINE MALEATE [Suspect]
     Active Substance: ASENAPINE MALEATE
     Indication: Schizophrenia
     Route: 060
     Dates: start: 20190211, end: 20190526
  4. ASENAPINE MALEATE [Suspect]
     Active Substance: ASENAPINE MALEATE
     Indication: Schizophrenia
     Route: 060
     Dates: start: 20181005, end: 20190210
  5. ABILIFY [Suspect]
     Active Substance: ARIPIPRAZOLE
     Indication: Schizophrenia
     Route: 048
     Dates: end: 20181105
  6. CLONAZEPAM [Suspect]
     Active Substance: CLONAZEPAM
     Indication: Schizophrenia
     Route: 048
     Dates: end: 20190109
  7. BIPERIDEN [Suspect]
     Active Substance: BIPERIDEN
     Indication: Product used for unknown indication
     Route: 048
     Dates: end: 20190310
  8. BIPERIDEN [Suspect]
     Active Substance: BIPERIDEN
     Indication: Product used for unknown indication
     Route: 048
     Dates: start: 20190311, end: 20190424
  9. BIPERIDEN [Suspect]
     Active Substance: BIPERIDEN
     Indication: Product used for unknown indication
     Route: 048
     Dates: start: 20190425, end: 20190428
  10. BIPERIDEN [Suspect]
     Active Substance: BIPERIDEN
     Indication: Product used for unknown indication
     Route: 048
     Dates: start: 20190429, end: 20190505
  11. ZOLOFT [Suspect]
     Active Substance: SERTRALINE HYDROCHLORIDE
     Indication: Product used for unknown indication
     Route: 048
     Dates: start: 20190318, end: 20190324
  12. STRATTERA [Suspect]
     Active Substance: ATOMOXETINE HYDROCHLORIDE
     Indication: Product used for unknown indication
     Route: 048
     Dates: start: 20180927, end: 20181022
  13. BELSOMRA [Suspect]
     Active Substance: SUVOREXANT
     Indication: Schizophrenia
     Route: 048
     Dates: start: 20190429, end: 20190505
  14. BELSOMRA [Suspect]
     Active Substance: SUVOREXANT
     Indication: Schizophrenia
     Route: 048
     Dates: start: 20190218, end: 20190428
  15. BELSOMRA [Suspect]
     Active Substance: SUVOREXANT
     Indication: Schizophrenia
     Route: 048
     Dates: end: 20190217
  16. AMLODIPINE\TELMISARTAN [Suspect]
     Active Substance: AMLODIPINE\TELMISARTAN
     Indication: Product used for unknown indication
     Route: 048
  17. EFFEXOR [Suspect]
     Active Substance: VENLAFAXINE HYDROCHLORIDE
     Indication: Product used for unknown indication
     Route: 048
     Dates: start: 20190329, end: 20190519
  18. EFFEXOR [Suspect]
     Active Substance: VENLAFAXINE HYDROCHLORIDE
     Indication: Product used for unknown indication
     Route: 048
     Dates: start: 20190325, end: 20190328
  19. EFFEXOR [Suspect]
     Active Substance: VENLAFAXINE HYDROCHLORIDE
     Indication: Product used for unknown indication
     Route: 048
     Dates: start: 20190520, end: 20190526
  20. MIANSERIN [Suspect]
     Active Substance: MIANSERIN
     Indication: Product used for unknown indication
     Route: 048
     Dates: end: 20181016
  21. URAPIDIL [Suspect]
     Active Substance: URAPIDIL
     Indication: Product used for unknown indication
     Route: 048
     Dates: start: 20190513
  22. URAPIDIL [Suspect]
     Active Substance: URAPIDIL
     Indication: Product used for unknown indication
     Route: 048
     Dates: start: 20190218, end: 20190512
  23. URAPIDIL [Suspect]
     Active Substance: URAPIDIL
     Indication: Product used for unknown indication
     Route: 048
     Dates: start: 20181011, end: 20190217
  24. RISPERIDONE [Suspect]
     Active Substance: RISPERIDONE
     Indication: Schizophrenia
     Route: 048
     Dates: start: 20190218, end: 20190310
  25. RISPERIDONE [Suspect]
     Active Substance: RISPERIDONE
     Indication: Schizophrenia
     Route: 048
     Dates: start: 20190311, end: 20190324
  26. RISPERIDONE [Suspect]
     Active Substance: RISPERIDONE
     Indication: Schizophrenia
     Route: 048
     Dates: start: 20190527, end: 20190602
  27. RISPERIDONE [Suspect]
     Active Substance: RISPERIDONE
     Indication: Schizophrenia
     Route: 048
     Dates: start: 20190513, end: 20190519
  28. RISPERIDONE [Suspect]
     Active Substance: RISPERIDONE
     Indication: Schizophrenia
     Route: 048
     Dates: end: 20190217
  29. RISPERIDONE [Suspect]
     Active Substance: RISPERIDONE
     Indication: Schizophrenia
     Route: 048
     Dates: start: 20190325, end: 20190512
  30. RISPERIDONE [Suspect]
     Active Substance: RISPERIDONE
     Indication: Schizophrenia
     Route: 048
     Dates: start: 20190520, end: 20190526
  31. PAXIL [Suspect]
     Active Substance: PAROXETINE HYDROCHLORIDE
     Indication: Product used for unknown indication
     Route: 048
     Dates: end: 20181024
  32. REXULTI [Suspect]
     Active Substance: BREXPIPRAZOLE
     Indication: Schizophrenia
     Route: 048
     Dates: start: 20190204, end: 20190519
  33. REXULTI [Suspect]
     Active Substance: BREXPIPRAZOLE
     Indication: Schizophrenia
     Route: 048
     Dates: start: 20190130, end: 20190203
  34. CLOZARIL [Suspect]
     Active Substance: CLOZAPINE
     Indication: Schizophrenia
     Route: 048
     Dates: start: 20190529, end: 20190531
  35. CLOZARIL [Suspect]
     Active Substance: CLOZAPINE
     Indication: Schizophrenia
     Route: 048
     Dates: start: 20190526, end: 20190528
  36. CLOZARIL [Suspect]
     Active Substance: CLOZAPINE
     Indication: Schizophrenia
     Route: 048
     Dates: start: 20190524, end: 20190525
  37. CLOZARIL [Suspect]
     Active Substance: CLOZAPINE
     Indication: Schizophrenia
     Route: 048
     Dates: start: 20190601, end: 20190602
  38. LITHIUM CARBONATE [Suspect]
     Active Substance: LITHIUM CARBONATE
     Indication: Schizophrenia
     Route: 048
     Dates: start: 20181022, end: 20190127
  39. FLUNITRAZEPAM [Suspect]
     Active Substance: FLUNITRAZEPAM
     Indication: Schizophrenia
     Route: 048
     Dates: start: 20190520
  40. QUAZEPAM [Suspect]
     Active Substance: QUAZEPAM
     Indication: Schizophrenia
     Route: 048
     Dates: start: 20190513
  41. REBAMIPIDE [Suspect]
     Active Substance: REBAMIPIDE
     Indication: Prophylaxis
     Route: 048
     Dates: start: 20181211, end: 20190109
  42. LOXOPROFEN SODIUM [Suspect]
     Active Substance: LOXOPROFEN SODIUM
     Indication: Adverse event
     Route: 048
     Dates: start: 20181211, end: 20190109
  43. BETHANECHOL CHLORIDE [Suspect]
     Active Substance: BETHANECHOL CHLORIDE
     Indication: Product used for unknown indication
     Route: 048
     Dates: start: 20181012
  44. NITRAZEPAM [Suspect]
     Active Substance: NITRAZEPAM
     Indication: Schizophrenia
     Route: 048
     Dates: start: 20190211, end: 20190512
  45. NITRAZEPAM [Suspect]
     Active Substance: NITRAZEPAM
     Indication: Schizophrenia
     Route: 048
     Dates: end: 20190210
  46. BROTIZOLAM [Suspect]
     Active Substance: BROTIZOLAM
     Indication: Schizophrenia
     Route: 048
     Dates: end: 20190210

REACTIONS (4)
  - Polydipsia [Not Recovered/Not Resolved]
  - Schizophrenia [Not Recovered/Not Resolved]
  - Hyperprolactinaemia [Recovered/Resolved]
  - Back pain [Recovered/Resolved]

NARRATIVE: CASE EVENT DATE: 20181211
